FAERS Safety Report 16566484 (Version 1)
Quarter: 2019Q3

REPORT INFORMATION
  Report Type: Spontaneous
  Country: DE (occurrence: DE)
  Receive Date: 20190712
  Receipt Date: 20190712
  Transmission Date: 20191004
  Serious: Yes (Death, Hospitalization)
  Sender: FDA-Public Use
  Company Number: DE-PFIZER INC-2019293186

PATIENT
  Age: 92 Year
  Sex: Female

DRUGS (10)
  1. METAMIZOL [Concomitant]
     Active Substance: METAMIZOLE SODIUM
     Dosage: 500 MG, UNK (1-0-1-0)
  2. XIPAMIDE [Concomitant]
     Active Substance: XIPAMIDE
     Dosage: 20 MG, 1X/DAY (1-0-0-0)
  3. METOPROLOL. [Concomitant]
     Active Substance: METOPROLOL
     Dosage: 47.5 MG, UNK (1-0-0.5-0)
  4. AMILORIDE [Concomitant]
     Active Substance: AMILORIDE
     Dosage: UNK UNK, 1X/DAY (1-0-0-0)
  5. ALLOPURINOL. [Concomitant]
     Active Substance: ALLOPURINOL
     Dosage: 100 MG, 1X/DAY (100 MG, 0-1-0-0)
  6. TORASEMIDE [Concomitant]
     Active Substance: TORSEMIDE
     Dosage: 5 MG, UNK (2-1-0-0)
  7. CELECOXIB. [Suspect]
     Active Substance: CELECOXIB
     Dosage: 200 MG, 1X/DAY (1-0-0-0)
  8. EUTHYROX [Concomitant]
     Active Substance: LEVOTHYROXINE SODIUM
     Dosage: 75 UG, 1X/DAY (1-0-0-0)
  9. VALSARTAN. [Concomitant]
     Active Substance: VALSARTAN
     Dosage: 160 MG, UNK (160 MG, 1-0-1-0)
  10. ASPIRIN. [Concomitant]
     Active Substance: ASPIRIN
     Dosage: 100 MG, 1X/DAY (0-1-0-0)

REACTIONS (4)
  - Death [Fatal]
  - Product prescribing error [Unknown]
  - Renal impairment [Unknown]
  - Dyspnoea [Unknown]

NARRATIVE: CASE EVENT DATE: 20160430
